FAERS Safety Report 4645268-1 (Version None)
Quarter: 2005Q2

REPORT INFORMATION
  Report Type: 
  Country: None (occurrence: None)
  Receive Date: 20050331
  Receipt Date: 20050228
  Transmission Date: 20051028
  Serious: No
  Sender: FDA-Public Use
  Company Number: 05P-163-0292130-00

PATIENT
  Age: 65 Year
  Sex: Male

DRUGS (13)
  1. HUMIRA [Suspect]
     Indication: RHEUMATOID ARTHRITIS
     Dosage: 40 MG, SUBCUTANEOUS
     Route: 058
     Dates: start: 20050227
  2. KETOPROFEN [Concomitant]
  3. PREDNISONE TAB [Concomitant]
  4. HYDROCHLOROTHIAZIDE [Concomitant]
  5. ATENOLOL [Concomitant]
  6. FEXOFENADINE HYDROCHLORIDE [Concomitant]
  7. PARACETAMOL [Concomitant]
  8. METHOTREXATE [Concomitant]
  9. OMEPRAZOLE [Concomitant]
  10. MONTELUKAST SODIUM [Concomitant]
  11. FENOFIBRATE [Concomitant]
  12. SIMVASTATIN [Concomitant]
  13. VITAMINS [Concomitant]

REACTIONS (1)
  - INJECTION SITE PAIN [None]
